FAERS Safety Report 4357659-7 (Version None)
Quarter: 2004Q2

REPORT INFORMATION
  Report Type: 
  Country: None (occurrence: None)
  Receive Date: 20040513
  Receipt Date: 20011025
  Transmission Date: 20050107
  Serious: Yes (Hospitalization)
  Sender: FDA-Public Use
  Company Number: US-MERCK-01104485

PATIENT
  Age: 87 Year
  Sex: Female
  Weight: 55 kg

DRUGS (8)
  1. TYLENOL (CAPLET) [Concomitant]
     Route: 048
  2. NORVASC [Concomitant]
     Route: 048
  3. ASPIRIN [Concomitant]
     Route: 048
  4. LOZOL [Concomitant]
     Route: 048
  5. LORAZEPAM [Concomitant]
     Route: 065
  6. ZANTAC [Concomitant]
     Route: 048
  7. VIOXX [Suspect]
     Indication: MONARTHRITIS
     Route: 048
     Dates: end: 20001101
  8. VIOXX [Suspect]
     Indication: ARTHRITIS
     Route: 048
     Dates: end: 20001101

REACTIONS (21)
  - BLOOD GLUCOSE INCREASED [None]
  - BLOOD PRESSURE FLUCTUATION [None]
  - BLOOD UREA INCREASED [None]
  - CARDIOVASCULAR DISORDER [None]
  - CHEST X-RAY ABNORMAL [None]
  - DIVERTICULUM [None]
  - DIVERTICULUM INTESTINAL [None]
  - EMOTIONAL DISTRESS [None]
  - FAECAL OCCULT BLOOD POSITIVE [None]
  - FAECES DISCOLOURED [None]
  - GASTRITIS [None]
  - GASTROENTERITIS HELICOBACTER [None]
  - LOWER GASTROINTESTINAL HAEMORRHAGE [None]
  - OEDEMA [None]
  - PAIN [None]
  - POLYTRAUMATISM [None]
  - RECTAL HAEMORRHAGE [None]
  - RENAL FAILURE [None]
  - SCOLIOSIS [None]
  - SPINAL OSTEOARTHRITIS [None]
  - WEIGHT DECREASED [None]
